FAERS Safety Report 15281251 (Version 1)
Quarter: 2018Q3

REPORT INFORMATION
  Report Type: Spontaneous
  Country: US (occurrence: US)
  Receive Date: 20180731
  Receipt Date: 20180731
  Transmission Date: 20181010
  Serious: Yes (Death)
  Sender: FDA-Public Use
  Company Number: None

PATIENT
  Age: 79 Year
  Sex: Female
  Weight: 85 kg

DRUGS (1)
  1. APIXABAN [Suspect]
     Active Substance: APIXABAN
     Indication: ATRIAL FIBRILLATION
     Route: 048

REACTIONS (8)
  - Unresponsive to stimuli [None]
  - Nervous system disorder [None]
  - Musculoskeletal discomfort [None]
  - Hypotension [None]
  - Corneal reflex decreased [None]
  - Areflexia [None]
  - Intraventricular haemorrhage [None]
  - Labile blood pressure [None]

NARRATIVE: CASE EVENT DATE: 20180524
